FAERS Safety Report 6708906-5 (Version None)
Quarter: 2010Q2

REPORT INFORMATION
  Report Type: 
  Country: None (occurrence: None)
  Receive Date: 20100504
  Receipt Date: 20100427
  Transmission Date: 20101027
  Serious: Yes (Life-Threatening, Hospitalization, Other)
  Sender: FDA-Public Use
  Company Number: JP-JNJFOC-20091005087

PATIENT
  Sex: Female
  Weight: 60 kg

DRUGS (13)
  1. DOXORUBICIN HCL [Suspect]
     Indication: OVARIAN CANCER RECURRENT
     Route: 042
  2. DOXORUBICIN HCL [Suspect]
     Route: 042
  3. DOXORUBICIN HCL [Suspect]
     Route: 042
  4. ESTRADIOL [Concomitant]
     Route: 048
  5. HACHIAZULE [Concomitant]
     Indication: PROPHYLAXIS
     Route: 049
  6. ANDERM [Concomitant]
     Indication: PALMAR-PLANTAR ERYTHRODYSAESTHESIA SYNDROME
     Route: 061
  7. AZUNOL [Concomitant]
     Indication: PALMAR-PLANTAR ERYTHRODYSAESTHESIA SYNDROME
     Route: 061
  8. MYSER [Concomitant]
     Indication: PALMAR-PLANTAR ERYTHRODYSAESTHESIA SYNDROME
     Route: 061
  9. GENTAMICIN [Concomitant]
     Indication: PALMAR-PLANTAR ERYTHRODYSAESTHESIA SYNDROME
     Route: 061
  10. HICEE [Concomitant]
     Route: 048
  11. VITANEURIN [Concomitant]
     Route: 048
  12. AMOBAN [Concomitant]
     Route: 048
  13. KENALOG [Concomitant]
     Route: 061

REACTIONS (1)
  - INTERSTITIAL LUNG DISEASE [None]
